FAERS Safety Report 16508414 (Version 1)
Quarter: 2019Q3

REPORT INFORMATION
  Report Type: Spontaneous
  Country: US (occurrence: US)
  Receive Date: 20190702
  Receipt Date: 20190702
  Transmission Date: 20191004
  Serious: No
  Sender: FDA-Public Use
  Company Number: US-ROCHE-2221539

PATIENT
  Age: 48 Year
  Sex: Female
  Weight: 109.32 kg

DRUGS (6)
  1. NORVASC [Concomitant]
     Active Substance: AMLODIPINE BESYLATE
     Route: 048
  2. AMLODIPINE [Concomitant]
     Active Substance: AMLODIPINE BESYLATE
     Route: 048
  3. DEXAMETHASONE. [Concomitant]
     Active Substance: DEXAMETHASONE
     Dosage: START DAY BEFORE CHEMO X 3 D
     Route: 048
     Dates: start: 20181121
  4. XELODA [Suspect]
     Active Substance: CAPECITABINE
     Dosage: TX CYCLE ON 14 DAYS OFF 7 DAYS
     Route: 048
     Dates: start: 201809
  5. XELODA [Suspect]
     Active Substance: CAPECITABINE
     Indication: COLON CANCER
     Route: 065
     Dates: start: 201811
  6. LOSARTAN. [Concomitant]
     Active Substance: LOSARTAN
     Route: 048

REACTIONS (1)
  - Insomnia [Unknown]

NARRATIVE: CASE EVENT DATE: 20181126
